FAERS Safety Report 5087924-X (Version None)
Quarter: 2006Q3

REPORT INFORMATION
  Report Type: 
  Country: None (occurrence: None)
  Receive Date: 20060823
  Receipt Date: 20060823
  Transmission Date: 20061208
  Serious: Yes (Death)
  Sender: FDA-Public Use
  Company Number: None

PATIENT
  Sex: Female
  Weight: 68.9467 kg

DRUGS (9)
  1. METHOTREXATE [Suspect]
     Indication: RHEUMATOID ARTHRITIS
     Dosage: 20 MG A WEEK PO
     Route: 048
     Dates: start: 20050812, end: 20060523
  2. ENBREL [Suspect]
     Indication: RHEUMATOID ARTHRITIS
     Dosage: 50 MG WK SQ
     Route: 058
     Dates: start: 20050812, end: 20060523
  3. HYDROXYCHLOROQUINE SULFATE [Suspect]
     Indication: RHEUMATOID ARTHRITIS
     Dosage: 200 MG PO BID
     Route: 048
     Dates: start: 20050812, end: 20060523
  4. SULFASALAZINE [Suspect]
     Indication: RHEUMATOID ARTHRITIS
     Dosage: 1000 MG PO BID
     Route: 048
     Dates: start: 20050812, end: 20060523
  5. PLACEBO [Suspect]
     Indication: RHEUMATOID ARTHRITIS
     Dates: start: 20050812, end: 20060523
  6. PREDNISONE TAB [Concomitant]
  7. LISINOPRIL [Concomitant]
  8. ROBITTUSIN AC [Concomitant]
  9. ... [Concomitant]

REACTIONS (2)
  - CONVULSION [None]
  - RESPIRATORY ARREST [None]
